FAERS Safety Report 6067046-1 (Version None)
Quarter: 2009Q1

REPORT INFORMATION
  Report Type: 
  Country: None (occurrence: None)
  Receive Date: 20090203
  Receipt Date: 20090203
  Transmission Date: 20090719
  Serious: Yes (Hospitalization)
  Sender: FDA-Public Use
  Company Number: 238664J08USA

PATIENT
  Age: 47 Year
  Sex: Female

DRUGS (4)
  1. REBIF [Suspect]
     Indication: MULTIPLE SCLEROSIS
     Dosage: 44 MCG, 3 IN 1 WEEKS, SUBCUTANEOUS
     Route: 058
     Dates: start: 20080716
  2. IBUPROFEN TABLETS [Suspect]
     Indication: PAIN IN EXTREMITY
     Dates: end: 20080901
  3. ALEVE (CAPLET) [Suspect]
     Indication: PAIN IN EXTREMITY
     Dates: end: 20080901
  4. NAPROXEN [Suspect]
     Indication: PAIN IN EXTREMITY
     Dates: end: 20080901

REACTIONS (3)
  - GASTRIC ULCER HAEMORRHAGE [None]
  - HAEMATEMESIS [None]
  - PAIN IN EXTREMITY [None]
